FAERS Safety Report 12285297 (Version 3)
Quarter: 2016Q3

REPORT INFORMATION
  Report Type: Spontaneous
  Country: DE (occurrence: DE)
  Receive Date: 20160420
  Receipt Date: 20160817
  Transmission Date: 20161109
  Serious: Yes (Hospitalization, Other)
  Sender: FDA-Public Use
  Company Number: PHHY2016DE051194

PATIENT
  Age: 43 Year
  Sex: Female

DRUGS (7)
  1. SIRDALUD [Concomitant]
     Active Substance: TIZANIDINE
     Indication: PRODUCT USED FOR UNKNOWN INDICATION
     Dosage: 4 MG, TID
     Route: 065
  2. GABAPENTIN. [Concomitant]
     Active Substance: GABAPENTIN
     Indication: PRODUCT USED FOR UNKNOWN INDICATION
     Dosage: 600 MG, TID
     Route: 065
  3. NOVALGIN [Concomitant]
     Active Substance: METAMIZOLE SODIUM
     Indication: PRODUCT USED FOR UNKNOWN INDICATION
     Dosage: UNK UNK, PRN (30 DROPS)
     Route: 065
  4. TARGIN [Concomitant]
     Active Substance: NALOXONE HYDROCHLORIDE\OXYCODONE HYDROCHLORIDE
     Indication: PRODUCT USED FOR UNKNOWN INDICATION
     Dosage: UNK UNK, TID
     Route: 065
  5. GILENYA [Suspect]
     Active Substance: FINGOLIMOD HYDROCHLORIDE
     Indication: MULTIPLE SCLEROSIS
     Dosage: 0.5 MG, QD
     Route: 048
     Dates: start: 201501, end: 201602
  6. PANTOZOL [Concomitant]
     Active Substance: PANTOPRAZOLE SODIUM
     Indication: PRODUCT USED FOR UNKNOWN INDICATION
     Dosage: 40 MG, QD
     Route: 065
  7. IBUPROFEN. [Concomitant]
     Active Substance: IBUPROFEN
     Indication: PRODUCT USED FOR UNKNOWN INDICATION
     Dosage: 600 MG, BID
     Route: 065

REACTIONS (21)
  - Blood creatinine increased [Unknown]
  - Hypercalcaemia [Unknown]
  - Staphylococcal bacteraemia [Recovered/Resolved]
  - Thoracic vertebral fracture [Unknown]
  - Anaemia [Unknown]
  - Acute kidney injury [Unknown]
  - Dyspnoea [Unknown]
  - Plasma cell myeloma [Unknown]
  - Pneumococcal sepsis [Unknown]
  - Tachypnoea [Unknown]
  - Discomfort [Unknown]
  - Pyrexia [Unknown]
  - Gastritis [Unknown]
  - Metastases to bone [Unknown]
  - Abdominal pain upper [Unknown]
  - Abdominal distension [Unknown]
  - Osteoporosis [Unknown]
  - Bone marrow tumour cell infiltration [Unknown]
  - Renal tubular disorder [Unknown]
  - Septic encephalopathy [Unknown]
  - Back pain [Unknown]

NARRATIVE: CASE EVENT DATE: 201509
